FAERS Safety Report 9762980 (Version 1)
Quarter: 2013Q4

REPORT INFORMATION
  Report Type: Spontaneous
  Country: US (occurrence: US)
  Receive Date: 20131216
  Receipt Date: 20131216
  Transmission Date: 20140711
  Serious: No
  Sender: FDA-Public Use
  Company Number: US-BIOGENIDEC-2013BI104353

PATIENT
  Age: 39 Year
  Sex: Female

DRUGS (10)
  1. TECFIDERA [Suspect]
     Indication: MULTIPLE SCLEROSIS
     Dates: start: 201308
  2. HYDROXYCHLOROQUINE SULFATE [Concomitant]
  3. LEFLUNOMIDE [Concomitant]
  4. XYZAL [Concomitant]
  5. SINGULAIR [Concomitant]
  6. PANTOPRAZOLE SODIUM [Concomitant]
  7. OXYBUTYNIN CHLORIDE [Concomitant]
  8. PRESTIQ [Concomitant]
  9. ALEVE [Concomitant]
  10. TUMS [Concomitant]

REACTIONS (1)
  - Stress [Unknown]
